FAERS Safety Report 24085438 (Version 1)
Quarter: 2024Q3

REPORT INFORMATION
  Report Type: Spontaneous
  Country: US (occurrence: None)
  Receive Date: 20240712
  Receipt Date: 20240712
  Transmission Date: 20241016
  Serious: No
  Sender: Public
  Company Number: None

PATIENT

DRUGS (8)
  1. GAMMAGARD LIQUID [Suspect]
     Active Substance: HUMAN IMMUNOGLOBULIN G
     Indication: Dermatomyositis
     Dosage: FREQUENCY : MONTHLY;?
     Route: 042
     Dates: start: 202406
  2. GAMMAGARD LIQUID [Suspect]
     Active Substance: HUMAN IMMUNOGLOBULIN G
     Indication: Dermatomyositis
     Dosage: FREQUENCY : MONTHLY;?
     Route: 042
     Dates: start: 202406
  3. baby? aspirin [Concomitant]
  4. TORADOL [Concomitant]
     Active Substance: KETOROLAC TROMETHAMINE
  5. MORPHINE [Concomitant]
     Active Substance: MORPHINE
  6. NITROGLYCERIN [Concomitant]
     Active Substance: NITROGLYCERIN
  7. ACETAMINOPHEN [Concomitant]
     Active Substance: ACETAMINOPHEN
  8. MAGNESIUM [Concomitant]
     Active Substance: MAGNESIUM

REACTIONS (4)
  - Chest pain [None]
  - Vomiting [None]
  - Cold sweat [None]
  - Infusion related reaction [None]
